FAERS Safety Report 19943897 (Version 6)
Quarter: 2023Q1

REPORT INFORMATION
  Report Type: Spontaneous
  Country: JP (occurrence: JP)
  Receive Date: 20211012
  Receipt Date: 20230213
  Transmission Date: 20230418
  Serious: Yes (Other)
  Sender: FDA-Public Use
  Company Number: JP-ONO-2021JP024680

PATIENT
  Age: 57 Year
  Sex: Male

DRUGS (1)
  1. OPDIVO [Suspect]
     Active Substance: NIVOLUMAB
     Indication: Non-small cell lung cancer recurrent
     Dosage: 3 MILLIGRAM/KILOGRAM?40 TIMES AT TWO-WEEK INTERVALS
     Route: 041
     Dates: start: 201705, end: 201901

REACTIONS (1)
  - Retroperitoneal fibrosis [Recovered/Resolved]

NARRATIVE: CASE EVENT DATE: 20181001
